FAERS Safety Report 12340146 (Version 3)
Quarter: 2016Q3

REPORT INFORMATION
  Report Type: Spontaneous
  Country: DE (occurrence: DE)
  Receive Date: 20160506
  Receipt Date: 20160707
  Transmission Date: 20161109
  Serious: Yes (Hospitalization, Other)
  Sender: FDA-Public Use
  Company Number: DE-BAXTER-2016BAX022688

PATIENT
  Sex: Female
  Weight: 57 kg

DRUGS (18)
  1. SUPRANE [Suspect]
     Active Substance: DESFLURANE
     Indication: OCCUPATIONAL EXPOSURE TO PRODUCT
     Dosage: DAILY CONTACT
     Route: 055
  2. FEXOFENADINE [Concomitant]
     Active Substance: FEXOFENADINE\FEXOFENADINE HYDROCHLORIDE
     Indication: HYPERSENSITIVITY
     Route: 048
  3. ESPUMISAN [Concomitant]
     Active Substance: DIMETHICONE
     Indication: PRODUCT USED FOR UNKNOWN INDICATION
     Dosage: SOLUTION
     Route: 065
  4. BRAUNOL [Concomitant]
     Active Substance: POVIDONE-IODINE
     Indication: INFECTION PROPHYLAXIS
     Route: 065
  5. SEVOFLURAN BAXTER 100 % FL?SSIGKEIT ZUR HERSTELLUNG EINES DAMPFS ZUR I [Suspect]
     Active Substance: SEVOFLURANE
     Indication: OCCUPATIONAL EXPOSURE TO PRODUCT
     Dosage: DAILY CONTACT
     Route: 055
  6. AERIUS [Concomitant]
     Active Substance: DESLORATADINE
     Indication: PRODUCT USED FOR UNKNOWN INDICATION
     Dosage: 1 X 1, ALWAYS (NOT FURTHER SPECIFIED)
     Route: 065
  7. VITAMIN C/ZINC [Concomitant]
     Indication: PRODUCT USED FOR UNKNOWN INDICATION
     Route: 065
  8. DESDERMAN PURE [Concomitant]
     Indication: INFECTION PROPHYLAXIS
     Route: 065
  9. SEVORANE [Suspect]
     Active Substance: SEVOFLURANE
     Indication: OCCUPATIONAL EXPOSURE TO PRODUCT
     Route: 055
  10. ALLERGOVAL [Concomitant]
     Indication: PRODUCT USED FOR UNKNOWN INDICATION
     Dosage: 2-2-2 (ALWAYS 30 MIN BEFORE EATING)
     Route: 065
  11. RANIDURA T [Concomitant]
     Indication: PRODUCT USED FOR UNKNOWN INDICATION
     Dosage: 2-0-2
     Route: 065
  12. BRAUNODERM [Concomitant]
     Indication: INFECTION PROPHYLAXIS
     Route: 065
  13. KODAN TINKTUR FORTE COLORLESS AND COLORED [Concomitant]
     Indication: INFECTION PROPHYLAXIS
     Route: 065
  14. ELONTRIL [Concomitant]
     Active Substance: BUPROPION HYDROCHLORIDE
     Indication: PRODUCT USED FOR UNKNOWN INDICATION
     Dosage: 1-0-0
     Route: 065
  15. STERILLIUM CLASSIC PURE [Concomitant]
     Indication: INFECTION PROPHYLAXIS
     Route: 065
  16. NATRIUMCROMOGLICAT [Concomitant]
     Indication: PRODUCT USED FOR UNKNOWN INDICATION
     Dosage: 3 X 2, ALWAYS (NOT FURTHER SPECIFIED)
     Route: 065
  17. ELONTRIL [Concomitant]
     Active Substance: BUPROPION HYDROCHLORIDE
     Dosage: TAPERED
     Route: 065
  18. SKINMAN SOFT [Concomitant]
     Indication: INFECTION PROPHYLAXIS
     Route: 065

REACTIONS (20)
  - Leiomyoma [Unknown]
  - Sinusitis [Unknown]
  - Fatigue [Recovering/Resolving]
  - Food intolerance [Unknown]
  - Peripheral swelling [Unknown]
  - Chronic fatigue syndrome [Unknown]
  - Irritable bowel syndrome [Unknown]
  - Allergic gastroenteritis [Unknown]
  - Tooth infection [Unknown]
  - Drug intolerance [Unknown]
  - Bronchial hyperreactivity [Unknown]
  - Night sweats [Unknown]
  - Occupational exposure to product [Recovered/Resolved]
  - Purulent discharge [Unknown]
  - Urticaria chronic [Unknown]
  - Nasal septum deviation [Unknown]
  - Colitis [Unknown]
  - Anaphylactic reaction [Recovering/Resolving]
  - Swelling [Recovering/Resolving]
  - Sleep disorder [Unknown]

NARRATIVE: CASE EVENT DATE: 2008
